FAERS Safety Report 4372223-1 (Version None)
Quarter: 2004Q2

REPORT INFORMATION
  Report Type: 
  Country: None (occurrence: None)
  Receive Date: 20040607
  Receipt Date: 20040601
  Transmission Date: 20050107
  Serious: Yes (Other)
  Sender: FDA-Public Use
  Company Number: US-BRISTOL-MYERS SQUIBB COMPANY-12601803

PATIENT
  Age: 74 Year
  Sex: Male
  Weight: 78 kg

DRUGS (4)
  1. ERBITUX [Suspect]
     Indication: COLON CANCER METASTATIC
     Dosage: INITIAL LOADING DOSE, 2ND INFUSION ON 27-MAY-2004 (462 MG)
     Route: 042
     Dates: start: 20040520, end: 20040520
  2. KYTRIL [Concomitant]
     Indication: PREMEDICATION
     Dosage: GIVEN BEFORE 1ST INFUSION (ORALLY) AND 2ND INFUSION (IVP)
     Route: 048
     Dates: start: 20040520, end: 20040520
  3. BENADRYL [Concomitant]
     Indication: PREMEDICATION
     Dosage: 50 MG ORALLY BEFORE 1ST INFUSION, 25 MG IVP BEFORE 2ND INFUSION
     Route: 048
     Dates: start: 20040520, end: 20040520
  4. DECADRON [Concomitant]
     Indication: PREMEDICATION
     Dosage: 10 MG IVP BEFORE 1ST INFUSION, 12 MG IVP BEFORE 2ND INFUSION
     Route: 042
     Dates: start: 20040520, end: 20040520

REACTIONS (6)
  - COUGH [None]
  - ERYTHEMA [None]
  - NAUSEA [None]
  - PRURITUS [None]
  - RASH [None]
  - VOMITING [None]
